FAERS Safety Report 23564585 (Version 1)
Quarter: 2024Q1

REPORT INFORMATION
  Report Type: Spontaneous
  Country: US (occurrence: None)
  Receive Date: 20240226
  Receipt Date: 20240226
  Transmission Date: 20240410
  Serious: Yes (Hospitalization)
  Sender: FDA-Public Use
  Company Number: US-ROCHE-3513885

PATIENT
  Age: 81 Year
  Sex: Female
  Weight: 54.3 kg

DRUGS (21)
  1. RITUXIMAB [Suspect]
     Active Substance: RITUXIMAB
     Indication: Diffuse large B-cell lymphoma stage IV
     Route: 041
     Dates: start: 20220610
  2. CYCLOPHOSPHAMIDE [Suspect]
     Active Substance: CYCLOPHOSPHAMIDE
     Indication: Diffuse large B-cell lymphoma stage IV
     Route: 042
     Dates: start: 20220610
  3. DOXORUBICIN [Suspect]
     Active Substance: DOXORUBICIN
     Indication: Diffuse large B-cell lymphoma stage IV
     Route: 042
     Dates: start: 20220610
  4. VINCRISTINE SULFATE [Suspect]
     Active Substance: VINCRISTINE SULFATE
     Indication: Diffuse large B-cell lymphoma stage IV
     Dosage: RECENT DOSE: 22/JUL/2022
     Route: 042
     Dates: start: 20220610
  5. VINCRISTINE SULFATE [Suspect]
     Active Substance: VINCRISTINE SULFATE
     Dosage: RECENT DOSE: 02/SEP/2022
     Route: 042
     Dates: start: 20220701
  6. PREDNISONE [Suspect]
     Active Substance: PREDNISONE
     Indication: Diffuse large B-cell lymphoma stage IV
     Dosage: RECENT DSOE: 17/JUN/2022, 24/JUN/2022
     Route: 048
     Dates: start: 20220610
  7. EPCORITAMAB [Suspect]
     Active Substance: EPCORITAMAB
     Indication: Diffuse large B-cell lymphoma stage IV
     Route: 058
     Dates: start: 20220610
  8. EPCORITAMAB [Suspect]
     Active Substance: EPCORITAMAB
     Route: 058
     Dates: start: 20220617
  9. EPCORITAMAB [Suspect]
     Active Substance: EPCORITAMAB
     Route: 058
     Dates: start: 20220624
  10. EPCORITAMAB [Suspect]
     Active Substance: EPCORITAMAB
     Dosage: RECENT DOSE: 21/OCT/2022
     Route: 058
     Dates: start: 20220902
  11. DIPHENHYDRAMINE [Concomitant]
     Active Substance: DIPHENHYDRAMINE
  12. MEPERIDINE [Concomitant]
     Active Substance: MEPERIDINE
  13. METHYLPREDNISOLONE [Concomitant]
     Active Substance: METHYLPREDNISOLONE
  14. SODIUM CHLORIDE [Concomitant]
     Active Substance: SODIUM CHLORIDE
  15. VALACYCLOVIR [Concomitant]
     Active Substance: VALACYCLOVIR HYDROCHLORIDE
  16. VANCOMYCIN [Concomitant]
     Active Substance: VANCOMYCIN
  17. NEULASTA [Concomitant]
     Active Substance: PEGFILGRASTIM
  18. ATROVENT [Concomitant]
     Active Substance: IPRATROPIUM BROMIDE
  19. GUAIFENESIN [Concomitant]
     Active Substance: GUAIFENESIN
  20. MEROPENEM [Concomitant]
     Active Substance: MEROPENEM
  21. AZITHROMYCIN [Concomitant]
     Active Substance: AZITHROMYCIN

REACTIONS (4)
  - Decreased appetite [Recovering/Resolving]
  - Neutrophil count decreased [Recovering/Resolving]
  - Pneumonia viral [Recovering/Resolving]
  - Rhinovirus infection [Recovered/Resolved]

NARRATIVE: CASE EVENT DATE: 20220711
